FAERS Safety Report 11705409 (Version 1)
Quarter: 2015Q4

REPORT INFORMATION
  Report Type: Spontaneous
  Country: GB (occurrence: GB)
  Receive Date: 20151106
  Receipt Date: 20151106
  Transmission Date: 20160304
  Serious: Yes (Hospitalization, Other)
  Sender: FDA-Public Use
  Company Number: PHHY2015GB140215

PATIENT
  Age: 23 Year
  Sex: Female

DRUGS (6)
  1. ADVAGRAF [Suspect]
     Active Substance: TACROLIMUS
     Indication: PRODUCT USED FOR UNKNOWN INDICATION
     Dosage: 5 MG, CAPSULE
     Route: 065
  2. AZATHIOPRINE. [Suspect]
     Active Substance: AZATHIOPRINE
     Indication: PRODUCT USED FOR UNKNOWN INDICATION
     Dosage: 50 MG, UNK
     Route: 065
  3. AZATHIOPRINE. [Suspect]
     Active Substance: AZATHIOPRINE
     Dosage: 25 MG, UNK
     Route: 065
  4. ADVAGRAF [Suspect]
     Active Substance: TACROLIMUS
     Dosage: 1 MG, CAPSULE
     Route: 065
  5. PREDNISOLONE. [Suspect]
     Active Substance: PREDNISOLONE
     Indication: PRODUCT USED FOR UNKNOWN INDICATION
     Dosage: UNK, UNKNOWN
     Route: 065
  6. ADVAGRAF [Suspect]
     Active Substance: TACROLIMUS
     Dosage: 0.5 MG, CAPSULE
     Route: 065

REACTIONS (1)
  - Haemoglobin decreased [Unknown]
